FAERS Safety Report 18605988 (Version 1)
Quarter: 2020Q4

REPORT INFORMATION
  Report Type: Spontaneous
  Country: US (occurrence: US)
  Receive Date: 20201211
  Receipt Date: 20201211
  Transmission Date: 20210114
  Serious: Yes (Death)
  Sender: FDA-Public Use
  Company Number: US-KYOWAKIRIN-2020BKK021810

PATIENT

DRUGS (1)
  1. POTELIGEO [Suspect]
     Active Substance: MOGAMULIZUMAB-KPKC
     Indication: CUTANEOUS T-CELL LYMPHOMA
     Dosage: 82 MG, DAY 1 AND 15 OF 28 DAYS
     Route: 042
     Dates: start: 20201103, end: 202012

REACTIONS (1)
  - Death [Fatal]

NARRATIVE: CASE EVENT DATE: 20201209
